FAERS Safety Report 26114278 (Version 1)
Quarter: 2025Q4

REPORT INFORMATION
  Report Type: Spontaneous
  Country: TH (occurrence: TH)
  Receive Date: 20251202
  Receipt Date: 20251202
  Transmission Date: 20260117
  Serious: Yes (Death, Hospitalization, Other)
  Sender: B. BRAUN MEDICAL INC.
  Company Number: TH-B. Braun Medical Inc.-TH-BBM-202504596

PATIENT
  Age: 22 Year
  Sex: Male

DRUGS (2)
  1. ACETAMINOPHEN [Suspect]
     Active Substance: ACETAMINOPHEN
     Dosage: 40G
  2. HERBALS\MITRAGYNINE [Concomitant]
     Active Substance: HERBALS\MITRAGYNINE
     Dosage: ONE LITER.

REACTIONS (3)
  - Liver injury [Fatal]
  - Methaemoglobinaemia [Fatal]
  - Overdose [Fatal]
